FAERS Safety Report 26118419 (Version 1)
Quarter: 2025Q4

REPORT INFORMATION
  Report Type: Spontaneous
  Country: RU (occurrence: RU)
  Receive Date: 20251203
  Receipt Date: 20251203
  Transmission Date: 20260118
  Serious: Yes (Other)
  Sender: Harrow Health
  Company Number: RU-Novartis Pharma-NVSC2025RU180943

PATIENT
  Age: 42 Year
  Sex: Female

DRUGS (2)
  1. MAXIDEX [Suspect]
     Active Substance: DEXAMETHASONE
     Indication: Uveitis
     Dosage: UNK, TID
  2. BETAMETHASONE [Concomitant]
     Active Substance: BETAMETHASONE
     Indication: Uveitis

REACTIONS (3)
  - Uveitis [Unknown]
  - Visual acuity reduced [Unknown]
  - Cystoid macular oedema [Unknown]
